FAERS Safety Report 5359456-2 (Version None)
Quarter: 2007Q2

REPORT INFORMATION
  Report Type: 
  Country: None (occurrence: None)
  Receive Date: 20070615
  Receipt Date: 20070604
  Transmission Date: 20071010
  Serious: Yes (Other)
  Sender: FDA-Public Use
  Company Number: KR-PFIZER INC-2007045332

PATIENT
  Sex: Male

DRUGS (1)
  1. HALCION [Suspect]
     Indication: INSOMNIA
     Route: 048

REACTIONS (2)
  - EYE HAEMORRHAGE [None]
  - VISUAL ACUITY REDUCED [None]
